FAERS Safety Report 24330355 (Version 3)
Quarter: 2025Q1

REPORT INFORMATION
  Report Type: Spontaneous
  Country: IE (occurrence: IE)
  Receive Date: 20240918
  Receipt Date: 20250108
  Transmission Date: 20250409
  Serious: Yes (Life-Threatening, Other)
  Sender: NOVO NORDISK
  Company Number: IE-NOVOPROD-1281974

PATIENT
  Age: 53 Year
  Sex: Female
  Weight: 55.329 kg

DRUGS (4)
  1. VAGIFEM [Suspect]
     Active Substance: ESTRADIOL
     Indication: Bladder disorder
  2. VAGIFEM [Suspect]
     Active Substance: ESTRADIOL
     Indication: Menopause
     Dosage: 10 ?G, QD (INSERTED 3 TABLETS,ON 3 CONSECUTIVE DAYS, 10 MICROGRAM DAILY DOSE, INTRAVAGINALLY)
     Route: 067
     Dates: start: 20240902, end: 20240904
  3. IRON [Concomitant]
     Active Substance: IRON
     Indication: Mineral supplementation
  4. VITAMIN D NOS [Concomitant]
     Active Substance: CHOLECALCIFEROL\ERGOCALCIFEROL

REACTIONS (2)
  - Abdominal pain [Recovered/Resolved]
  - Hallucination [Recovered/Resolved]

NARRATIVE: CASE EVENT DATE: 20240902
